FAERS Safety Report 6002007-X (Version None)
Quarter: 2008Q4

REPORT INFORMATION
  Report Type: 
  Country: None (occurrence: None)
  Receive Date: 20081215
  Receipt Date: 20081205
  Transmission Date: 20090506
  Serious: Yes (Death, Hospitalization)
  Sender: FDA-Public Use
  Company Number: JP-AMGEN-US258456

PATIENT
  Sex: Female
  Weight: 37 kg

DRUGS (8)
  1. ENBREL [Suspect]
     Indication: RHEUMATOID ARTHRITIS
     Route: 058
     Dates: start: 20060828, end: 20071105
  2. PROGRAF [Suspect]
     Indication: DRUG USE FOR UNKNOWN INDICATION
     Route: 048
     Dates: start: 20070625, end: 20070722
  3. PROGRAF [Suspect]
     Route: 048
     Dates: start: 20070723, end: 20071115
  4. METALCAPTASE [Suspect]
     Indication: DRUG USE FOR UNKNOWN INDICATION
     Route: 048
     Dates: start: 20030530, end: 20071115
  5. PREDNISOLONE [Suspect]
     Indication: RHEUMATOID ARTHRITIS
     Route: 048
     Dates: start: 20030530, end: 20071115
  6. METHOTREXATE [Suspect]
     Indication: DRUG USE FOR UNKNOWN INDICATION
     Dosage: UNKNOWN
     Route: 048
     Dates: start: 20030530, end: 20071115
  7. ETODOLAC [Concomitant]
     Route: 048
     Dates: start: 20030530, end: 20071115
  8. FOLIAMIN [Concomitant]
     Route: 048
     Dates: start: 20030530, end: 20071115

REACTIONS (3)
  - BRONCHOPULMONARY ASPERGILLOSIS [None]
  - CANDIDA SEROLOGY POSITIVE [None]
  - PNEUMONIA STAPHYLOCOCCAL [None]
